FAERS Safety Report 21349148 (Version 2)
Quarter: 2022Q4

REPORT INFORMATION
  Report Type: Spontaneous
  Country: DE (occurrence: DE)
  Receive Date: 20220919
  Receipt Date: 20221014
  Transmission Date: 20230113
  Serious: Yes (Hospitalization, Other)
  Sender: FDA-Public Use
  Company Number: DE-ADRED-07245-01

PATIENT

DRUGS (3)
  1. BUPROPION [Suspect]
     Active Substance: BUPROPION
     Indication: Product used for unknown indication
     Dosage: 300 MG, QD, 1-0-0-0
     Route: 048
  2. QUETIAPINE [Suspect]
     Active Substance: QUETIAPINE
     Indication: Product used for unknown indication
     Dosage: 50 MG, QD,  (0-0-0-1, TABLET)
     Route: 048
  3. QUETIAPINE [Suspect]
     Active Substance: QUETIAPINE
     Dosage: 200 MG, QD ( 0-0-0-1)
     Route: 048

REACTIONS (17)
  - Restlessness [Unknown]
  - Job dissatisfaction [Unknown]
  - Renal failure [Unknown]
  - Depressed mood [Unknown]
  - Illusion [Unknown]
  - Weight decreased [Unknown]
  - Decreased appetite [Unknown]
  - Hallucination, auditory [Unknown]
  - Thinking abnormal [Unknown]
  - Depressed mood [Unknown]
  - Schizoaffective disorder [Unknown]
  - Weight decreased [Unknown]
  - Anxiety [Unknown]
  - Abdominal discomfort [Unknown]
  - Hyperkalaemia [Unknown]
  - Hyponatraemia [Unknown]
  - Persecutory delusion [Unknown]
